FAERS Safety Report 6986074-2 (Version None)
Quarter: 2010Q3

REPORT INFORMATION
  Report Type: 
  Country: None (occurrence: None)
  Receive Date: 20100915
  Receipt Date: 20100909
  Transmission Date: 20110219
  Serious: Yes (Hospitalization)
  Sender: FDA-Public Use
  Company Number: US-GILEAD-2010-0031756

PATIENT
  Sex: Female

DRUGS (1)
  1. LETAIRIS [Suspect]
     Indication: PULMONARY ARTERIAL HYPERTENSION
     Route: 048
     Dates: start: 20100312

REACTIONS (4)
  - BLOOD POTASSIUM ABNORMAL [None]
  - BLOOD PRESSURE ABNORMAL [None]
  - BLOOD URINE PRESENT [None]
  - RENAL DISORDER [None]
